FAERS Safety Report 21589061 (Version 2)
Quarter: 2023Q1

REPORT INFORMATION
  Report Type: Spontaneous
  Country: US (occurrence: US)
  Receive Date: 20221114
  Receipt Date: 20230109
  Transmission Date: 20230417
  Serious: Yes (Hospitalization, Other)
  Sender: FDA-Public Use
  Company Number: US-GLENMARK PHARMACEUTICALS-2022GMK076335

PATIENT
  Age: 59 Year
  Sex: Male

DRUGS (1)
  1. METFORMIN HYDROCHLORIDE [Suspect]
     Active Substance: METFORMIN HYDROCHLORIDE
     Indication: Product used for unknown indication
     Dosage: UNK
     Route: 065

REACTIONS (5)
  - Parkinsonism [Recovering/Resolving]
  - Hypertensive crisis [Recovering/Resolving]
  - Magnetic resonance imaging head abnormal [Recovering/Resolving]
  - Drug level increased [Unknown]
  - Lactic acidosis [Unknown]
